FAERS Safety Report 26106581 (Version 1)
Quarter: 2025Q4

REPORT INFORMATION
  Report Type: Spontaneous
  Country: US (occurrence: US)
  Receive Date: 20251201
  Receipt Date: 20251201
  Transmission Date: 20260118
  Serious: No
  Sender: GLAND PHARMA LTD
  Company Number: US-GLANDPHARMA-US-2025GLNSPO02077

PATIENT

DRUGS (2)
  1. DORZOLAMIDE HYDROCHLORIDE [Suspect]
     Active Substance: DORZOLAMIDE HYDROCHLORIDE
     Indication: Cystoid macular oedema
     Route: 065
     Dates: start: 2025
  2. DIAMOX SEQUELS [Concomitant]
     Active Substance: ACETAZOLAMIDE
     Route: 065

REACTIONS (2)
  - Blepharitis [Unknown]
  - Product use in unapproved indication [Unknown]
